FAERS Safety Report 7260440 (Version 4)
Quarter: 2014Q2

REPORT INFORMATION
  Report Type: Spontaneous
  Country: JP (occurrence: JP)
  Receive Date: 20100129
  Receipt Date: 20140415
  Transmission Date: 20141212
  Serious: Yes (Other)
  Sender: FDA-Public Use
  Company Number: PHHY2010JP02771

PATIENT
  Age: 59 Year
  Sex: Female

DRUGS (11)
  1. SANDOSTATIN LAR [Suspect]
     Indication: ACROMEGALY
     Dosage: 20 MG, QMO
     Route: 030
     Dates: start: 200406
  2. SANDOSTATIN LAR [Suspect]
     Dosage: 20 MG, QMO
     Route: 030
     Dates: start: 200709
  3. SANDOSTATIN LAR [Suspect]
     Dosage: 20 MG, QMO
     Route: 030
     Dates: start: 200801
  4. SANDOSTATIN LAR [Suspect]
     Dosage: 20 MG, QMO
     Route: 030
     Dates: start: 200908
  5. SOMAVERT [Concomitant]
     Indication: ACROMEGALY
     Dosage: 10 MG, QW2
     Route: 058
     Dates: start: 20070904
  6. SOMAVERT [Concomitant]
     Dosage: 20 MG, QW
     Dates: start: 200908
  7. LEVOTHYROXINE SODIUM [Concomitant]
     Route: 048
  8. BLOPRESS [Concomitant]
     Route: 048
  9. EPADEL [Concomitant]
     Dosage: 900 MG, ONE DOSE IN MORNING A DAY
     Route: 048
  10. MECOBALAMIN [Concomitant]
     Dosage: 2 DF, BID
     Route: 048
  11. ENCHININ [Concomitant]
     Dosage: 2 DF, BID
     Route: 048

REACTIONS (9)
  - Diabetic complication [Recovering/Resolving]
  - Glucose tolerance impaired [Recovering/Resolving]
  - Glycosylated haemoglobin increased [Unknown]
  - Acromegaly [Recovering/Resolving]
  - Hypoaesthesia [Recovering/Resolving]
  - Arthralgia [Recovering/Resolving]
  - Fatigue [Recovering/Resolving]
  - Oedema [Recovering/Resolving]
  - Drug effect incomplete [Unknown]
